FAERS Safety Report 9277362 (Version 1)
Quarter: 2013Q2

REPORT INFORMATION
  Report Type: Spontaneous
  Country: US (occurrence: None)
  Receive Date: 20130503
  Receipt Date: 20130503
  Transmission Date: 20140414
  Serious: No
  Sender: FDA-Public Use
  Company Number: None

PATIENT
  Age: 65 Year
  Sex: Female

DRUGS (1)
  1. DOXAZOSIN [Suspect]
     Indication: HYPERTENSION
     Dosage: 1 MG 1 X DAY. ??TO 4/15
     Dates: start: 201211

REACTIONS (1)
  - Gastrooesophageal reflux disease [None]
